FAERS Safety Report 17478664 (Version 1)
Quarter: 2020Q1

REPORT INFORMATION
  Report Type: Spontaneous
  Country: FR (occurrence: FR)
  Receive Date: 20200228
  Receipt Date: 20200228
  Transmission Date: 20200409
  Serious: Yes (Other)
  Sender: FDA-Public Use
  Company Number: FR-MYLANLABS-2020M1021689

PATIENT
  Age: 69 Year
  Sex: Female

DRUGS (7)
  1. GRANOCYTE [Suspect]
     Active Substance: LENOGRASTIM
     Indication: NEUTROPENIA
     Dosage: UNK
     Dates: start: 20161116
  2. TEMOZOLOMIDE. [Suspect]
     Active Substance: TEMOZOLOMIDE
     Indication: PANCREATIC NEUROENDOCRINE TUMOUR
     Dosage: 300 MG, QD, 5 DAYS
     Dates: start: 20160609, end: 20170129
  3. ESOMEPRAZOLE. [Concomitant]
     Active Substance: ESOMEPRAZOLE MAGNESIUM
     Indication: ABDOMINAL PAIN UPPER
     Dosage: UNK
     Route: 048
     Dates: start: 201701
  4. CAPECITABINE. [Suspect]
     Active Substance: CAPECITABINE
     Indication: PANCREATIC NEUROENDOCRINE TUMOUR
     Dosage: 1500 MG, BID, FOR 14 DAYS
     Dates: start: 20160609, end: 20170124
  5. CAPECITABINE. [Suspect]
     Active Substance: CAPECITABINE
     Dosage: 1000 MG, BID, FOR 14 DAYS
     Dates: start: 20170124, end: 20170129
  6. ELOXATIN [Concomitant]
     Active Substance: OXALIPLATIN
     Dosage: UNK
     Dates: start: 20170320
  7. FLUOROURACIL. [Concomitant]
     Active Substance: FLUOROURACIL
     Dosage: UNK

REACTIONS (6)
  - Cough [Unknown]
  - Blood pressure increased [Unknown]
  - Pyrexia [Unknown]
  - Influenza like illness [Unknown]
  - Pneumonia [Recovered/Resolved]
  - Chest discomfort [Not Recovered/Not Resolved]

NARRATIVE: CASE EVENT DATE: 20161102
